FAERS Safety Report 5729864-6 (Version None)
Quarter: 2008Q2

REPORT INFORMATION
  Report Type: 
  Country: None (occurrence: None)
  Receive Date: 20080502
  Receipt Date: 20080425
  Transmission Date: 20081010
  Serious: Yes (Death)
  Sender: FDA-Public Use
  Company Number: 163-21880-08030043

PATIENT
  Age: 62 Year
  Sex: Female

DRUGS (5)
  1. REVLIMID [Suspect]
     Indication: MYELODYSPLASTIC SYNDROME
     Dosage: SEE IMAGE, ORAL
     Route: 048
     Dates: start: 20060224, end: 20060601
  2. REVLIMID [Suspect]
     Indication: MYELODYSPLASTIC SYNDROME
     Dosage: SEE IMAGE, ORAL
     Route: 048
     Dates: start: 20060615, end: 20060701
  3. REVLIMID [Suspect]
     Indication: MYELODYSPLASTIC SYNDROME
     Dosage: SEE IMAGE, ORAL
     Route: 048
     Dates: start: 20060803, end: 20060901
  4. REVLIMID [Suspect]
     Indication: MYELODYSPLASTIC SYNDROME
     Dosage: SEE IMAGE, ORAL
     Route: 048
     Dates: start: 20060901, end: 20061101
  5. REVLIMID [Suspect]
     Indication: MYELODYSPLASTIC SYNDROME
     Dosage: SEE IMAGE, ORAL
     Route: 048
     Dates: start: 20070209, end: 20080201

REACTIONS (3)
  - EPISTAXIS [None]
  - RASH [None]
  - WEIGHT INCREASED [None]
